FAERS Safety Report 7777128-1 (Version None)
Quarter: 2011Q3

REPORT INFORMATION
  Report Type: 
  Country: None (occurrence: None)
  Receive Date: 20110926
  Receipt Date: 20110922
  Transmission Date: 20111222
  Serious: Yes (Other)
  Sender: FDA-Public Use
  Company Number: US-BRISTOL-MYERS SQUIBB COMPANY-15920994

PATIENT
  Age: 64 Year
  Sex: Male
  Weight: 81 kg

DRUGS (10)
  1. COUMADIN [Suspect]
     Indication: ATRIAL FIBRILLATION
     Dosage: FOR 7 YEARS,DOSE REDUCED TO 2.5MG ON 2011,DOSE:3MG,ONSET DT:21APR05
     Route: 048
     Dates: start: 20040101
  2. TOPROL-XL [Concomitant]
     Dosage: FREQ:25*L
  3. COUMADIN [Suspect]
     Indication: CEREBRAL ARTERY EMBOLISM
     Dosage: FOR 7 YEARS,DOSE REDUCED TO 2.5MG ON 2011,DOSE:3MG,ONSET DT:21APR05
     Route: 048
     Dates: start: 20040101
  4. CIPROFLOXACIN [Concomitant]
  5. COUMADIN [Suspect]
     Indication: CEREBROVASCULAR ACCIDENT
     Dosage: FOR 7 YEARS,DOSE REDUCED TO 2.5MG ON 2011,DOSE:3MG,ONSET DT:21APR05
     Route: 048
     Dates: start: 20040101
  6. SIMVASTATIN [Concomitant]
  7. GLUCOTROL [Concomitant]
  8. JANUMET [Concomitant]
     Dosage: DOSE:50/500 (UNITS NOT SPECIFIED)
  9. PROTONIX [Concomitant]
  10. ALTACE [Concomitant]

REACTIONS (5)
  - HEPATOMEGALY [None]
  - LEUKOCYTOSIS [None]
  - INTERNATIONAL NORMALISED RATIO INCREASED [None]
  - ATRIAL FIBRILLATION [None]
  - COLON CANCER METASTATIC [None]
